FAERS Safety Report 9241798 (Version 3)
Quarter: 2014Q1

REPORT INFORMATION
  Report Type: Spontaneous
  Country: DE (occurrence: DE)
  Receive Date: 20130419
  Receipt Date: 20140203
  Transmission Date: 20141002
  Serious: Yes (Hospitalization)
  Sender: FDA-Public Use
  Company Number: PHHY2013DE038067

PATIENT
  Age: 76 Year
  Sex: Female
  Weight: 106 kg

DRUGS (1)
  1. TASIGNA [Suspect]
     Indication: CHRONIC MYELOID LEUKAEMIA
     Dosage: 800 MG, PER DAY
     Route: 048
     Dates: start: 20120816, end: 20130416

REACTIONS (5)
  - Cerebral ischaemia [Recovered/Resolved]
  - Cognitive disorder [Recovered/Resolved]
  - Cerebral artery occlusion [Recovered/Resolved]
  - Subarachnoid haemorrhage [Recovered/Resolved]
  - Atrial fibrillation [Recovered/Resolved]
